FAERS Safety Report 23270240 (Version 1)
Quarter: 2023Q4

REPORT INFORMATION
  Report Type: Spontaneous
  Country: IT (occurrence: IT)
  Receive Date: 20231207
  Receipt Date: 20231207
  Transmission Date: 20240110
  Serious: Yes (Hospitalization, Other)
  Sender: FDA-Public Use
  Company Number: IT-MINISAL02-956913

PATIENT
  Age: 80 Year
  Sex: Female

DRUGS (3)
  1. ALENDRONIC ACID [Suspect]
     Active Substance: ALENDRONIC ACID
     Indication: Product used for unknown indication
     Dosage: 70 MILLIGRAM, ONCE A DAY(1 CPR DA 70MG/DIE (AL GIORNO ANZICH? ALLA SETTIMANA))
     Route: 048
     Dates: start: 20231021, end: 20231026
  2. TACHIPIRINA [Concomitant]
     Active Substance: ACETAMINOPHEN
     Indication: Injury
     Dosage: 1 GRAM, 3 TIMES A DAY(1 GRAMMO, 3 VOLTE/DIE )
     Route: 048
     Dates: start: 20231021
  3. NALOXONE HYDROCHLORIDE\OXYCODONE HYDROCHLORIDE [Concomitant]
     Active Substance: NALOXONE HYDROCHLORIDE\OXYCODONE HYDROCHLORIDE
     Indication: Injury
     Dosage: TWO TIMES A DAY(2,5 MG+5 MG, 2 VOLTE/DIE)
     Route: 048
     Dates: start: 20231025

REACTIONS (5)
  - Hepatotoxicity [Recovering/Resolving]
  - Alanine aminotransferase increased [Recovering/Resolving]
  - Aspartate aminotransferase increased [Recovering/Resolving]
  - Medication error [Recovering/Resolving]
  - Overdose [Recovering/Resolving]

NARRATIVE: CASE EVENT DATE: 20231021
